FAERS Safety Report 8796835 (Version 2)
Quarter: 2015Q1

REPORT INFORMATION
  Report Type: Report from Study
  Country: US (occurrence: US)
  Receive Date: 20120917
  Receipt Date: 20150327
  Transmission Date: 20150721
  Serious: Yes (Death)
  Sender: FDA-Public Use
  Company Number: US-ROCHE-1126072

PATIENT
  Sex: Male

DRUGS (9)
  1. ALOXI [Concomitant]
     Active Substance: PALONOSETRON HYDROCHLORIDE
     Route: 042
  2. OXALIPLATIN. [Concomitant]
     Active Substance: OXALIPLATIN
     Route: 042
  3. AVASTIN [Suspect]
     Active Substance: BEVACIZUMAB
     Indication: GASTRIC CANCER
     Route: 042
     Dates: start: 20071204
  4. 5-FLUOROURACIL [Concomitant]
     Active Substance: FLUOROURACIL
     Route: 042
  5. DECADRON [Concomitant]
     Active Substance: DEXAMETHASONE
     Route: 042
  6. LEUKINE [Concomitant]
     Active Substance: SARGRAMOSTIM
     Route: 065
  7. LEUCOVORIN [Concomitant]
     Active Substance: LEUCOVORIN
     Route: 042
  8. NEUPOGEN [Concomitant]
     Active Substance: FILGRASTIM
     Route: 065
  9. TYLENOL [Concomitant]
     Active Substance: ACETAMINOPHEN

REACTIONS (12)
  - Neutropenia [Unknown]
  - Dry mouth [Unknown]
  - Death [Fatal]
  - Flushing [Unknown]
  - Off label use [Unknown]
  - Oral pain [Unknown]
  - Chills [Unknown]
  - Hiccups [Unknown]
  - Skin ulcer [Recovered/Resolved]
  - White blood cell count decreased [Unknown]
  - Arthralgia [Unknown]
  - Gingival blister [Recovered/Resolved]
